FAERS Safety Report 9513387 (Version 1)
Quarter: 2013Q3

REPORT INFORMATION
  Report Type: Spontaneous
  Country: US (occurrence: US)
  Receive Date: 20130910
  Receipt Date: 20130910
  Transmission Date: 20140515
  Serious: No
  Sender: FDA-Public Use
  Company Number: 2012P1003970

PATIENT
  Age: 72 Year
  Sex: Female
  Weight: 104.33 kg

DRUGS (5)
  1. WARFARIN SODIUM TABLETS USP 5MG [Suspect]
     Indication: ATRIAL FIBRILLATION
     Route: 048
     Dates: start: 200812, end: 20120801
  2. WARFARIN SODIUM TABLETS USP 5MG [Suspect]
     Indication: ATRIAL FIBRILLATION
     Route: 048
     Dates: start: 20120802
  3. WARFARIN SODIUM TABLETS USP 5MG [Suspect]
     Indication: ATRIAL FIBRILLATION
     Route: 048
     Dates: start: 20120802
  4. METOPROLOL [Concomitant]
  5. VITAMIN D [Concomitant]

REACTIONS (2)
  - Chromaturia [Not Recovered/Not Resolved]
  - International normalised ratio increased [Recovering/Resolving]
